FAERS Safety Report 17850398 (Version 1)
Quarter: 2020Q2

REPORT INFORMATION
  Report Type: Spontaneous
  Country: US (occurrence: US)
  Receive Date: 20200601
  Receipt Date: 20200601
  Transmission Date: 20200714
  Serious: Yes (Death)
  Sender: FDA-Public Use
  Company Number: None

PATIENT
  Age: 51 Year
  Sex: Male

DRUGS (27)
  1. ACYCLOVIR. [Concomitant]
     Active Substance: ACYCLOVIR
  2. AMLODIPINE [Concomitant]
     Active Substance: AMLODIPINE BESYLATE
  3. MEMANTINE. [Concomitant]
     Active Substance: MEMANTINE
  4. METFORMIN [Concomitant]
     Active Substance: METFORMIN HYDROCHLORIDE
  5. OMEPRAZOLE. [Concomitant]
     Active Substance: OMEPRAZOLE
  6. KLOR-CON M10 [Concomitant]
     Active Substance: POTASSIUM CHLORIDE
  7. LORAZEPAM. [Concomitant]
     Active Substance: LORAZEPAM
  8. MEGESTEROL AC [Concomitant]
  9. PREDNISONE. [Concomitant]
     Active Substance: PREDNISONE
  10. SALINE NASAL [Concomitant]
     Active Substance: SODIUM CHLORIDE
  11. LEVOFLOXACIN. [Concomitant]
     Active Substance: LEVOFLOXACIN
  12. ORPHENADRINE [Concomitant]
     Active Substance: ORPHENADRINE
  13. CAPECITABINE 500MG TAB [Suspect]
     Active Substance: CAPECITABINE
     Indication: NONSPECIFIC REACTION
     Dosage: ?          OTHER FREQUENCY:QAM-QPM;?
     Route: 048
     Dates: start: 20200502
  14. ALBUTEROL NEB [Concomitant]
     Active Substance: ALBUTEROL
  15. BENZONATATE. [Concomitant]
     Active Substance: BENZONATATE
  16. FENTANYL. [Concomitant]
     Active Substance: FENTANYL
  17. FUROSEMIDE. [Concomitant]
     Active Substance: FUROSEMIDE
  18. OLANZAPINE. [Concomitant]
     Active Substance: OLANZAPINE
  19. DICLOFENAC [Concomitant]
     Active Substance: DICLOFENAC
  20. DULOXETINE. [Concomitant]
     Active Substance: DULOXETINE
  21. DEXAMETHASON [Concomitant]
     Active Substance: DEXAMETHASONE
  22. METHYLPHEND [Concomitant]
     Active Substance: METHYLPHENIDATE HYDROCHLORIDE
  23. HYDRO/APAP [Concomitant]
     Active Substance: ACETAMINOPHEN\HYDROCODONE
  24. PROCHLORPER [Concomitant]
  25. SCOPOLAMINE DIS [Concomitant]
  26. VALACYCLOVIR VITUSSIN AC [Concomitant]
  27. MORPHINE SUL [Concomitant]
     Active Substance: MORPHINE SULFATE

REACTIONS (1)
  - Terminal state [None]

NARRATIVE: CASE EVENT DATE: 20200514
